FAERS Safety Report 4363641-6 (Version None)
Quarter: 2004Q2

REPORT INFORMATION
  Report Type: 
  Country: None (occurrence: None)
  Receive Date: 20040517
  Receipt Date: 20040415
  Transmission Date: 20050107
  Serious: No
  Sender: FDA-Public Use
  Company Number: S04-USA-02103-01

PATIENT
  Age: 61 Year
  Sex: Female

DRUGS (5)
  1. NAMENDA [Suspect]
     Indication: AMNESIA
     Dosage: 20 MG QD PO
     Route: 048
     Dates: start: 20040101, end: 20040412
  2. RESTORIL [Concomitant]
  3. ZYPREXA [Concomitant]
  4. IMIPRAMINE [Concomitant]
  5. ZANTAC [Concomitant]

REACTIONS (3)
  - DELUSION [None]
  - INSOMNIA [None]
  - PARANOIA [None]
